FAERS Safety Report 9193317 (Version 1)
Quarter: 2013Q1

REPORT INFORMATION
  Report Type: Spontaneous
  Country: US (occurrence: None)
  Receive Date: 20130325
  Receipt Date: 20130325
  Transmission Date: 20140127
  Serious: Yes (Other)
  Sender: FDA-Public Use
  Company Number: None

PATIENT
  Age: 59 Year
  Sex: Female
  Weight: 88.91 kg

DRUGS (1)
  1. MORPHINE [Suspect]
     Indication: PAIN MANAGEMENT
     Dates: start: 20130227, end: 20130320

REACTIONS (7)
  - Vertigo [None]
  - Dyspnoea [None]
  - Pruritus generalised [None]
  - Hyperhidrosis [None]
  - Nausea [None]
  - Inadequate analgesia [None]
  - Product substitution issue [None]
